FAERS Safety Report 8450110-7 (Version None)
Quarter: 2012Q2

REPORT INFORMATION
  Report Type: 
  Country: None (occurrence: None)
  Receive Date: 20120613
  Receipt Date: 20120530
  Transmission Date: 20120825
  Serious: Yes (Death, Hospitalization)
  Sender: FDA-Public Use
  Company Number: 2012P1003848

PATIENT
  Sex: Female

DRUGS (1)
  1. XIAFLEX [Suspect]
     Indication: SKIN WOUND
     Dosage: X1
     Dates: start: 20100131, end: 20120131

REACTIONS (9)
  - CARDIAC FAILURE CONGESTIVE [None]
  - IMPAIRED HEALING [None]
  - PNEUMONIA [None]
  - CARDIOMYOPATHY [None]
  - ERYTHEMA [None]
  - DIABETES MELLITUS [None]
  - WOUND COMPLICATION [None]
  - DRUG INEFFECTIVE [None]
  - LUNG DISORDER [None]
